FAERS Safety Report 16154930 (Version 2)
Quarter: 2019Q2

REPORT INFORMATION
  Report Type: Spontaneous
  Country: AT (occurrence: AT)
  Receive Date: 20190403
  Receipt Date: 20190603
  Transmission Date: 20190711
  Serious: Yes (Other)
  Sender: FDA-Public Use
  Company Number: PHHY2019AT075120

PATIENT
  Sex: Male

DRUGS (2)
  1. OMNITROPE [Suspect]
     Active Substance: SOMATROPIN
     Indication: GROWTH DISORDER
     Dosage: UNK (TOOK THE DRUG FOR 6 YEARS)
     Route: 065
  2. CECLOR [Concomitant]
     Active Substance: CEFACLOR
     Indication: RENAL DISORDER
     Dosage: UNK
     Route: 065

REACTIONS (2)
  - Growth failure [Unknown]
  - Depression [Unknown]
